FAERS Safety Report 7265399-X (Version None)
Quarter: 2011Q1

REPORT INFORMATION
  Report Type: 
  Country: None (occurrence: None)
  Receive Date: 20110131
  Receipt Date: 20110122
  Transmission Date: 20110831
  Serious: Yes (Death, Hospitalization)
  Sender: FDA-Public Use
  Company Number: EG-SANOFI-AVENTIS-2011SA004462

PATIENT
  Age: 73 Year
  Sex: Male

DRUGS (1)
  1. INSULIN GLARGINE [Suspect]
     Indication: DIABETES MELLITUS
     Route: 058
     Dates: start: 20100501, end: 20101201

REACTIONS (3)
  - HAEMORRHAGE [None]
  - DEATH [None]
  - HEPATIC NEOPLASM MALIGNANT [None]
